FAERS Safety Report 7494807-4 (Version None)
Quarter: 2011Q2

REPORT INFORMATION
  Report Type: 
  Country: None (occurrence: None)
  Receive Date: 20110520
  Receipt Date: 20110512
  Transmission Date: 20111010
  Serious: Yes (Hospitalization)
  Sender: FDA-Public Use
  Company Number: A0927944A

PATIENT
  Sex: Female

DRUGS (2)
  1. LAMICTAL [Suspect]
     Dosage: 200MG UNKNOWN
     Route: 065
     Dates: start: 20100325
  2. WELLBUTRIN SR [Suspect]
     Dosage: 150MG UNKNOWN
     Route: 065
     Dates: start: 20100416

REACTIONS (2)
  - MENTAL DISORDER [None]
  - ARTHROPATHY [None]
